FAERS Safety Report 14570933 (Version 1)
Quarter: 2018Q1

REPORT INFORMATION
  Report Type: Spontaneous
  Country: US (occurrence: US)
  Receive Date: 20180226
  Receipt Date: 20180226
  Transmission Date: 20180509
  Serious: Yes (Death)
  Sender: FDA-Public Use
  Company Number: US-ROCHE-2078257

PATIENT
  Sex: Male

DRUGS (15)
  1. ESBRIET [Suspect]
     Active Substance: PIRFENIDONE
     Indication: IDIOPATHIC PULMONARY FIBROSIS
     Route: 048
     Dates: start: 20160416
  2. METOPROLOL. [Concomitant]
     Active Substance: METOPROLOL
  3. WARFARIN [Concomitant]
     Active Substance: WARFARIN
  4. IPRATROPIUM [Concomitant]
     Active Substance: IPRATROPIUM
  5. BENZONATATE. [Concomitant]
     Active Substance: BENZONATATE
  6. FENOFIBRATE. [Concomitant]
     Active Substance: FENOFIBRATE
  7. MORPHINE SULFATE. [Concomitant]
     Active Substance: MORPHINE SULFATE
  8. PANTOPRAZOLE [Concomitant]
     Active Substance: PANTOPRAZOLE
  9. LORAZEPAM. [Concomitant]
     Active Substance: LORAZEPAM
  10. TRIAMTERENE AND HYDROCHLOROTHIAZIDE [Concomitant]
     Active Substance: HYDROCHLOROTHIAZIDE\TRIAMTERENE
  11. PREDNISONE. [Concomitant]
     Active Substance: PREDNISONE
  12. FUROSEMIDE. [Concomitant]
     Active Substance: FUROSEMIDE
  13. ATORVASTATIN [Concomitant]
     Active Substance: ATORVASTATIN
  14. NITROGLYCERIN. [Concomitant]
     Active Substance: NITROGLYCERIN
  15. CLOPIDOGREL [Concomitant]
     Active Substance: CLOPIDOGREL BISULFATE

REACTIONS (1)
  - Death [Fatal]
